FAERS Safety Report 10884439 (Version 1)
Quarter: 2015Q1

REPORT INFORMATION
  Report Type: Spontaneous
  Country: US (occurrence: US)
  Receive Date: 20150304
  Receipt Date: 20150304
  Transmission Date: 20150721
  Serious: Yes (Other)
  Sender: FDA-Public Use
  Company Number: US-JNJFOC-20150215623

PATIENT
  Sex: Male
  Weight: 117.94 kg

DRUGS (3)
  1. ALLOPURINOL. [Concomitant]
     Active Substance: ALLOPURINOL
     Indication: GOUT
     Route: 065
  2. DURAGESIC [Suspect]
     Active Substance: FENTANYL
     Indication: PAIN
     Dosage: INITIATED ON AN UNSPECIFIED DATE IN SEP OR OCT-2000 OR 2001
     Route: 062
  3. DURAGESIC [Suspect]
     Active Substance: FENTANYL
     Indication: PAIN
     Dosage: INITIATED ON AN UNSPECIFIED DATE IN SEP OR OCT-2000 OR 2001
     Route: 062

REACTIONS (7)
  - Sedation [Unknown]
  - Withdrawal syndrome [Unknown]
  - Myocardial infarction [Unknown]
  - Impaired driving ability [Unknown]
  - Muscle atrophy [Not Recovered/Not Resolved]
  - Inadequate analgesia [Unknown]
  - Dysarthria [Unknown]
